FAERS Safety Report 11745017 (Version 1)
Quarter: 2015Q4

REPORT INFORMATION
  Report Type: Report from Study
  Country: NL (occurrence: NL)
  Receive Date: 20151117
  Receipt Date: 20151117
  Transmission Date: 20160304
  Serious: Yes (Other)
  Sender: FDA-Public Use
  Company Number: NL-ROCHE-1658430

PATIENT

DRUGS (5)
  1. PEGYLATED LIPOSOMAL DOXORUBICIN [Suspect]
     Active Substance: DOXORUBICIN
     Indication: OVARIAN EPITHELIAL CANCER
     Dosage: DAY 1, Q4 WEEKS FOR EVERY SIX CYCLES
     Route: 065
  2. TOCILIZUMAB [Suspect]
     Active Substance: TOCILIZUMAB
     Indication: OVARIAN EPITHELIAL CANCER
     Route: 042
  3. PEGINTERFERON ALFA-2B [Suspect]
     Active Substance: PEGINTERFERON ALFA-2B
     Indication: OVARIAN EPITHELIAL CANCER
     Dosage: DAY 1, Q4 WEEKS IN ADDITION TO TOCILIZUMAB AT OPTIMAL DOSE DURING FIRST THREE CYCLES CHEMOTHERAPY
     Route: 058
  4. DOXORUBICIN [Suspect]
     Active Substance: DOXORUBICIN
     Indication: OVARIAN EPITHELIAL CANCER
     Dosage: DAY 1, Q4 WEEKS FOR EVERY SIX CYCLES
     Route: 042
  5. CARBOPLATIN. [Suspect]
     Active Substance: CARBOPLATIN
     Indication: OVARIAN EPITHELIAL CANCER
     Dosage: AUC5; DAY 1, Q4 WEEKS FOR EVERY SIX CYCLES
     Route: 065

REACTIONS (6)
  - Platelet count decreased [Unknown]
  - White blood cell count decreased [Unknown]
  - Ileus [Unknown]
  - Febrile neutropenia [Unknown]
  - Alanine aminotransferase abnormal [Unknown]
  - Neutropenia [Unknown]
